FAERS Safety Report 20335337 (Version 1)
Quarter: 2022Q1

REPORT INFORMATION
  Report Type: Spontaneous
  Country: US (occurrence: None)
  Receive Date: 20220113
  Receipt Date: 20220113
  Transmission Date: 20220423
  Serious: Yes (Hospitalization, Other)
  Sender: FDA-Public Use
  Company Number: None

PATIENT
  Age: 57 Year
  Sex: Male
  Weight: 44.9 kg

DRUGS (11)
  1. EVUSHELD [Suspect]
     Active Substance: CILGAVIMAB\TIXAGEVIMAB
     Indication: COVID-19 prophylaxis
     Dosage: FREQUENCY : ONCE;?
     Route: 030
     Dates: start: 20220112, end: 20220112
  2. INFLIXIMAB [Concomitant]
     Active Substance: INFLIXIMAB
     Dates: start: 20220112, end: 20220112
  3. ERTAPENEM [Concomitant]
     Active Substance: ERTAPENEM
     Dates: start: 20220104, end: 20220113
  4. ACYCLOVIR [Concomitant]
     Active Substance: ACYCLOVIR
  5. CRESEMBA [Concomitant]
     Active Substance: ISAVUCONAZONIUM SULFATE
  6. VANCOMYCIN [Concomitant]
     Active Substance: VANCOMYCIN
  7. TACROLIMUS [Concomitant]
     Active Substance: TACROLIMUS
  8. KEPPRA [Concomitant]
     Active Substance: LEVETIRACETAM
  9. SOLU-MEDROL [Concomitant]
     Active Substance: METHYLPREDNISOLONE SODIUM SUCCINATE
  10. PREVYMIS [Concomitant]
     Active Substance: LETERMOVIR
  11. MEPRON [Concomitant]
     Active Substance: ATOVAQUONE

REACTIONS (1)
  - Generalised tonic-clonic seizure [None]

NARRATIVE: CASE EVENT DATE: 20220112
